FAERS Safety Report 13188723 (Version 1)
Quarter: 2017Q1

REPORT INFORMATION
  Report Type: Spontaneous
  Country: US (occurrence: US)
  Receive Date: 20170205
  Receipt Date: 20170205
  Transmission Date: 20170428
  Serious: No
  Sender: FDA-Public Use
  Company Number: None

PATIENT
  Age: 46 Year
  Sex: Female
  Weight: 65.25 kg

DRUGS (4)
  1. GABAPENTIN. [Concomitant]
     Active Substance: GABAPENTIN
  2. METHYLPHENIDATE CD [Suspect]
     Active Substance: METHYLPHENIDATE HYDROCHLORIDE
     Indication: ATTENTION DEFICIT/HYPERACTIVITY DISORDER
     Dosage: ?          QUANTITY:30 CAPSULE(S);?
     Route: 048
     Dates: start: 20170203, end: 20170205
  3. MELODICALLY [Concomitant]
  4. ALBUTERAL [Concomitant]
     Active Substance: ALBUTEROL

REACTIONS (6)
  - Restlessness [None]
  - Irritability [None]
  - Anxiety [None]
  - Heart rate increased [None]
  - Product quality issue [None]
  - Disturbance in attention [None]

NARRATIVE: CASE EVENT DATE: 20170203
